FAERS Safety Report 5337039-8 (Version None)
Quarter: 2007Q2

REPORT INFORMATION
  Report Type: 
  Country: None (occurrence: None)
  Receive Date: 20070529
  Receipt Date: 20070522
  Transmission Date: 20071010
  Serious: Yes (Hospitalization, Other)
  Sender: FDA-Public Use
  Company Number: HQWYE307922MAY07

PATIENT
  Age: 68 Year
  Sex: Female

DRUGS (8)
  1. INDERAL [Suspect]
     Indication: BASEDOW'S DISEASE
     Route: 048
     Dates: start: 20060619, end: 20070501
  2. ALLEGRA [Concomitant]
     Indication: RASH
     Route: 048
     Dates: start: 20060814
  3. ACETYLSALICYLIC ACID SRT [Concomitant]
  4. MERCAZOLE [Concomitant]
     Route: 048
     Dates: start: 20060601
  5. VALTREX [Concomitant]
  6. LOXONIN [Concomitant]
  7. PROPYLTHIOURACIL [Suspect]
     Indication: BASEDOW'S DISEASE
     Dosage: UNSPECIFIED
     Route: 048
     Dates: start: 20060724, end: 20070416
  8. MARZULENE S [Concomitant]
     Indication: RASH
     Route: 048
     Dates: start: 20061002

REACTIONS (4)
  - HERPES VIRUS INFECTION [None]
  - OEDEMA PERIPHERAL [None]
  - PALMAR ERYTHEMA [None]
  - PYREXIA [None]
